FAERS Safety Report 7562446-2 (Version None)
Quarter: 2011Q2

REPORT INFORMATION
  Report Type: 
  Country: None (occurrence: None)
  Receive Date: 20110622
  Receipt Date: 20110614
  Transmission Date: 20111010
  Serious: Yes (Death, Life-Threatening)
  Sender: FDA-Public Use
  Company Number: ES-AMGEN-ESPSP2011022331

PATIENT
  Age: 51 Year
  Sex: Male

DRUGS (13)
  1. ENBREL [Suspect]
     Dosage: 50 MG, WEEKLY
     Route: 058
     Dates: start: 20110316
  2. ATORVASTATIN [Concomitant]
     Indication: BLOOD CHOLESTEROL
     Dosage: 40 MG, 1X/DAY
     Route: 048
  3. CITALOPRAM HYDROBROMIDE [Concomitant]
     Indication: ANTIDEPRESSANT THERAPY
     Dosage: 20 MG, 1X/DAY
     Route: 048
  4. VALSARTAN [Concomitant]
     Indication: HYPOTENSION
     Dosage: 160 MG, 1X/DAY
     Route: 048
  5. ALLOPURINOL [Concomitant]
     Indication: BLOOD URIC ACID
     Dosage: 300 MG, 1X/DAY
     Route: 048
  6. ENBREL [Suspect]
     Indication: PSORIASIS
     Dosage: 50 MG, 2X/WEEK
     Route: 058
     Dates: start: 20100518, end: 20110315
  7. ALPRAZOLAM [Concomitant]
     Indication: ANXIOLYTIC THERAPY
     Dosage: 0.5 UNK, PRN
     Route: 048
  8. CEMIDON [Concomitant]
     Indication: TUBERCULIN TEST POSITIVE
     Dosage: 300 MG, 1X/DAY
     Dates: start: 20100318
  9. AMLODIPINE [Concomitant]
     Indication: HYPOTENSION
     Dosage: 10 MG, 1X/DAY
     Route: 048
  10. CLOPIDOGREL [Concomitant]
     Indication: ANTIPLATELET THERAPY
     Dosage: 75 MG, 1X/DAY
     Route: 048
  11. EZETIMIBE [Concomitant]
     Indication: BLOOD CHOLESTEROL
     Dosage: 10 MG, 1X/DAY
     Route: 048
  12. FUROSEMIDE [Concomitant]
     Indication: DIURETIC THERAPY
     Dosage: 40 MG, 1X/DAY
     Route: 048
  13. NEBIVOLOL HCL [Concomitant]
     Indication: HYPOTENSION
     Dosage: 5 MG, 1X/DAY
     Route: 048

REACTIONS (2)
  - ACUTE MYOCARDIAL INFARCTION [None]
  - CARDIAC ARREST [None]
